FAERS Safety Report 7279747-8 (Version None)
Quarter: 2011Q1

REPORT INFORMATION
  Report Type: 
  Country: None (occurrence: None)
  Receive Date: 20110208
  Receipt Date: 20110128
  Transmission Date: 20110831
  Serious: Yes (Other)
  Sender: FDA-Public Use
  Company Number: PHHY2011DE06890

PATIENT
  Age: 55 Year
  Sex: Female

DRUGS (6)
  1. EUTHYROX [Concomitant]
     Dosage: 125 UG, UNK
  2. TILIDIN [Concomitant]
     Dosage: 40 GTT, QD (IN EVENING)
  3. TORSEMIDE [Concomitant]
     Dosage: 10 MG, UNK
  4. STILNOX [Concomitant]
     Dosage: 1 DF, QD
  5. RASILEZ [Suspect]
     Dosage: 1 DF (300 MG), QD
     Dates: start: 20101001
  6. PANTOZOL [Concomitant]
     Dosage: 40 MG, QD

REACTIONS (6)
  - FATIGUE [None]
  - PHARYNGEAL OEDEMA [None]
  - COUGH [None]
  - ERUCTATION [None]
  - MICTURITION URGENCY [None]
  - ABDOMINAL DISTENSION [None]
